FAERS Safety Report 21656158 (Version 6)
Quarter: 2023Q2

REPORT INFORMATION
  Report Type: Report from Study
  Country: PA (occurrence: PA)
  Receive Date: 20221129
  Receipt Date: 20230510
  Transmission Date: 20230721
  Serious: Yes (Hospitalization, Other)
  Sender: FDA-Public Use
  Company Number: PA-002147023-NVSC2022PA265198

PATIENT
  Age: 47 Year
  Sex: Female

DRUGS (2)
  1. KISQALI [Suspect]
     Active Substance: RIBOCICLIB
     Indication: Breast cancer metastatic
     Dosage: 3 DOSAGE FORM, QD (600 MG)
     Route: 048
     Dates: start: 20220811, end: 202211
  2. ANASTROZOLE [Suspect]
     Active Substance: ANASTROZOLE
     Indication: Product used for unknown indication
     Dosage: UNK
     Route: 065

REACTIONS (16)
  - Radiation injury [Recovering/Resolving]
  - General physical health deterioration [Unknown]
  - Haemoglobin decreased [Unknown]
  - Platelet count decreased [Unknown]
  - Metastases to breast [Unknown]
  - Multiple sclerosis relapse [Unknown]
  - Hypersensitivity [Unknown]
  - COVID-19 [Unknown]
  - Fear [Unknown]
  - Urticaria [Unknown]
  - Decreased immune responsiveness [Unknown]
  - Dysphagia [Unknown]
  - Hypertransaminasaemia [Unknown]
  - Dizziness [Unknown]
  - Liver disorder [Unknown]
  - Asthenia [Unknown]

NARRATIVE: CASE EVENT DATE: 20230101
